FAERS Safety Report 6274996-X (Version None)
Quarter: 2009Q3

REPORT INFORMATION
  Report Type: 
  Country: None (occurrence: None)
  Receive Date: 20090717
  Receipt Date: 20090703
  Transmission Date: 20100115
  Serious: Yes (Life-Threatening)
  Sender: FDA-Public Use
  Company Number: 8048769

PATIENT
  Age: 30 Year
  Sex: Male
  Weight: 75 kg

DRUGS (5)
  1. PREDNISOLONE [Suspect]
     Indication: EYE LASER SURGERY
     Dosage: 1 DF 3/D EYE
     Dates: start: 20090501, end: 20090502
  2. CYCLOPENTOLATE MINIMS [Suspect]
     Indication: EYE LASER SURGERY
     Dosage: 1 DF 3/D EYE
     Dates: start: 20090501, end: 20090502
  3. LANTOS [Concomitant]
  4. NOVORAPID [Concomitant]
  5. ASCORBIC ACID [Concomitant]

REACTIONS (1)
  - HYPOGLYCAEMIA [None]
